FAERS Safety Report 6702552-5 (Version None)
Quarter: 2010Q2

REPORT INFORMATION
  Report Type: 
  Country: None (occurrence: None)
  Receive Date: 20100429
  Receipt Date: 20100416
  Transmission Date: 20101027
  Serious: Yes (Other)
  Sender: FDA-Public Use
  Company Number: US-ELI_LILLY_AND_COMPANY-US201002000804

PATIENT
  Sex: Female

DRUGS (16)
  1. FORTEO [Suspect]
     Indication: OSTEOPOROSIS
     Dosage: 20 UG, DAILY (1/D)
     Dates: start: 20090101
  2. SPIRIVA [Concomitant]
     Dosage: 18 UG, 2/D
  3. EXELON [Concomitant]
     Dosage: 4.6 MG, UNK
  4. PROAIR HFA [Concomitant]
     Dosage: 90 UG, UNK
  5. XALATAN [Concomitant]
  6. NEXIUM [Concomitant]
     Dosage: 40 MG, UNK
  7. LIPITOR [Concomitant]
     Dosage: 40 MG, UNK
  8. ALBUTEROL [Concomitant]
  9. SYMBICORT [Concomitant]
  10. RANITIDINE [Concomitant]
     Dosage: 300 MG, UNK
  11. ALPRAZOLAM [Concomitant]
     Dosage: 0.5 MG, UNK
  12. TRAZODONE HCL [Concomitant]
     Dosage: 50 MG, UNK
  13. LEXAPRO [Concomitant]
     Dosage: 30 MG, UNK
  14. ACTONEL [Concomitant]
     Dosage: 30 MG, UNK
  15. FLUTICASONE PROPIONATE [Concomitant]
     Route: 045
  16. ASPIRIN [Concomitant]

REACTIONS (2)
  - COMPUTERISED TOMOGRAM CORONARY ARTERY ABNORMAL [None]
  - DIZZINESS [None]
